FAERS Safety Report 15729209 (Version 1)
Quarter: 2018Q4

REPORT INFORMATION
  Report Type: Spontaneous
  Country: US (occurrence: US)
  Receive Date: 20181215
  Receipt Date: 20181215
  Transmission Date: 20190205
  Serious: Yes (Disabling)
  Sender: FDA-Public Use
  Company Number: None

PATIENT
  Age: 50 Year
  Sex: Female
  Weight: 81 kg

DRUGS (15)
  1. IODINE. [Concomitant]
     Active Substance: IODINE
  2. ZINC. [Concomitant]
     Active Substance: ZINC
  3. SILVER [Concomitant]
     Active Substance: SILVER
  4. FOLIC ACID. [Concomitant]
     Active Substance: FOLIC ACID
  5. IBUPROFEN 800 MG TAB ASCE [Suspect]
     Active Substance: IBUPROFEN SODIUM
     Indication: PAIN
     Dosage: ?          QUANTITY:1 TABLET(S);?
     Route: 048
     Dates: start: 20180815, end: 20181208
  6. IBUPROFEN 800 MG TAB ASCE [Suspect]
     Active Substance: IBUPROFEN SODIUM
     Indication: ARTHRITIS
     Dosage: ?          QUANTITY:1 TABLET(S);?
     Route: 048
     Dates: start: 20180815, end: 20181208
  7. ALCAFTADINE [Concomitant]
     Active Substance: ALCAFTADINE
  8. GLUCOSAMINE [Concomitant]
     Active Substance: GLUCOSAMINE
  9. IBUPROFEN. [Concomitant]
     Active Substance: IBUPROFEN
  10. MAGNESIUM [Concomitant]
     Active Substance: MAGNESIUM
  11. PROBIOTIC [Concomitant]
     Active Substance: PROBIOTICS NOS
  12. KERATIN [Concomitant]
     Active Substance: KERATIN
  13. IBUPROFEN 800 MG TAB ASCE [Suspect]
     Active Substance: IBUPROFEN SODIUM
     Indication: SCOLIOSIS
     Dosage: ?          QUANTITY:1 TABLET(S);?
     Route: 048
     Dates: start: 20180815, end: 20181208
  14. COOPER CRILL OIL [Concomitant]
  15. IRON [Concomitant]
     Active Substance: IRON

REACTIONS (3)
  - Treatment failure [None]
  - Product substitution issue [None]
  - Product taste abnormal [None]

NARRATIVE: CASE EVENT DATE: 20180901
